FAERS Safety Report 15926509 (Version 1)
Quarter: 2019Q1

REPORT INFORMATION
  Report Type: Report from Study
  Country: CA (occurrence: CA)
  Receive Date: 20190206
  Receipt Date: 20190206
  Transmission Date: 20190417
  Serious: Yes (Other)
  Sender: FDA-Public Use
  Company Number: CA-GLAXOSMITHKLINE-CA2019GSK011569

PATIENT
  Age: 58 Year
  Sex: Male

DRUGS (2)
  1. FLUTICASONE PROPIONATE+SALMETEROL XINAFOATE [Suspect]
     Active Substance: FLUTICASONE PROPIONATE\SALMETEROL XINAFOATE
     Indication: PRODUCT USED FOR UNKNOWN INDICATION
     Dosage: UNK
     Dates: start: 200905
  2. VENTOLIN [Suspect]
     Active Substance: ALBUTEROL SULFATE
     Indication: PRODUCT USED FOR UNKNOWN INDICATION
     Dosage: 100 UNK, PRN

REACTIONS (4)
  - Obstructive airways disorder [Recovered/Resolved]
  - Drug effect incomplete [Unknown]
  - Asthma [Unknown]
  - Blood immunoglobulin E increased [Unknown]

NARRATIVE: CASE EVENT DATE: 20190123
